FAERS Safety Report 7509832-4 (Version None)
Quarter: 2011Q2

REPORT INFORMATION
  Report Type: 
  Country: None (occurrence: None)
  Receive Date: 20110527
  Receipt Date: 20110412
  Transmission Date: 20111010
  Serious: Yes (Hospitalization)
  Sender: FDA-Public Use
  Company Number: A0929220A

PATIENT
  Sex: Female

DRUGS (5)
  1. PHENOBARBITAL TAB [Concomitant]
     Dates: start: 19620101
  2. HYDANTAL [Concomitant]
     Dates: start: 19980101
  3. GINKGO BILOBA [Concomitant]
  4. CLONAZEPAM [Concomitant]
     Dates: start: 19980101
  5. ACITRETIN [Suspect]
     Indication: PSORIASIS
     Dosage: 25MG PER DAY
     Route: 048
     Dates: start: 20030101, end: 20040101

REACTIONS (16)
  - NEOPLASM MALIGNANT [None]
  - NERVOUS SYSTEM DISORDER [None]
  - PANCREATIC NEOPLASM [None]
  - VISUAL IMPAIRMENT [None]
  - LUNG NEOPLASM [None]
  - EPILEPSY [None]
  - ALOPECIA [None]
  - MUSCLE ATROPHY [None]
  - WEIGHT DECREASED [None]
  - VISION BLURRED [None]
  - CONVULSION [None]
  - INTRACRANIAL PRESSURE INCREASED [None]
  - CARDIAC FAILURE CONGESTIVE [None]
  - ADRENAL CARCINOMA [None]
  - PSORIASIS [None]
  - LIP DRY [None]
